FAERS Safety Report 19060330 (Version 1)
Quarter: 2021Q1

REPORT INFORMATION
  Report Type: Spontaneous
  Country: IT (occurrence: IT)
  Receive Date: 20210326
  Receipt Date: 20210326
  Transmission Date: 20210420
  Serious: Yes (Life-Threatening, Hospitalization, Other)
  Sender: FDA-Public Use
  Company Number: IT-LUPIN PHARMACEUTICALS INC.-2021-03738

PATIENT
  Age: 53 Year
  Sex: Female

DRUGS (5)
  1. ALPRAZOLAM. [Suspect]
     Active Substance: ALPRAZOLAM
     Indication: INSOMNIA
     Dosage: UNK?UNKNOWN QUANTITY
     Route: 065
  2. FLUMAZENIL. [Concomitant]
     Active Substance: FLUMAZENIL
     Indication: TOXICITY TO VARIOUS AGENTS
     Dosage: 1 MILLIGRAM, UNK
     Route: 042
  3. NALOXONE [Concomitant]
     Active Substance: NALOXONE
     Indication: TOXICITY TO VARIOUS AGENTS
     Dosage: 0.4 MILLIGRAM, UNK
     Route: 042
  4. ZOLPIDEM [Suspect]
     Active Substance: ZOLPIDEM TARTRATE
     Indication: INSOMNIA
     Dosage: 9000 MILLIGRAM?DELIBERATE INGESTION OF 9000 MG OF ZOLPIDEM CONSUMED IN THE FORM OF 30 BOTTLES OF 30M
     Route: 048
  5. FLUMAZENIL. [Concomitant]
     Active Substance: FLUMAZENIL
     Dosage: 2 MILLIGRAM, UNK
     Route: 042

REACTIONS (6)
  - Encephalopathy [Recovered/Resolved]
  - Coma [Recovered/Resolved]
  - Toxicity to various agents [Unknown]
  - Transaminases increased [Recovered/Resolved]
  - Intentional overdose [Unknown]
  - Suicide attempt [Unknown]
